FAERS Safety Report 6330665-9 (Version None)
Quarter: 2009Q3

REPORT INFORMATION
  Report Type: 
  Country: None (occurrence: None)
  Receive Date: 20090827
  Receipt Date: 20090824
  Transmission Date: 20100115
  Serious: Yes (Death, Life-Threatening)
  Sender: FDA-Public Use
  Company Number: JP-AVENTIS-200912306JP

PATIENT
  Age: 75 Year
  Sex: Male
  Weight: 60 kg

DRUGS (4)
  1. TAXOTERE [Suspect]
     Route: 041
     Dates: start: 20090707, end: 20090707
  2. ESTRACYT                           /00327002/ [Concomitant]
     Dosage: DOSE: 4 CAPSULES
     Route: 048
     Dates: start: 20090310, end: 20090701
  3. ESTRACYT                           /00327002/ [Concomitant]
     Dosage: DOSE: 2 CAPSULES
     Route: 048
     Dates: start: 20090701, end: 20090723
  4. PREDNISOLONE [Concomitant]
     Route: 048
     Dates: start: 20090630, end: 20090723

REACTIONS (3)
  - GASTROINTESTINAL HAEMORRHAGE [None]
  - HERPES SIMPLEX [None]
  - INTERSTITIAL LUNG DISEASE [None]
